FAERS Safety Report 12823866 (Version 1)
Quarter: 2016Q4

REPORT INFORMATION
  Report Type: Spontaneous
  Country: AU (occurrence: AU)
  Receive Date: 20161006
  Receipt Date: 20161006
  Transmission Date: 20170207
  Serious: Yes (Death, Other)
  Sender: FDA-Public Use
  Company Number: AU-TEVA-699465ISR

PATIENT

DRUGS (3)
  1. NUVIGIL [Suspect]
     Active Substance: ARMODAFINIL
     Indication: SLEEP DISORDER
  2. NUVIGIL [Suspect]
     Active Substance: ARMODAFINIL
  3. NUVIGIL [Suspect]
     Active Substance: ARMODAFINIL

REACTIONS (14)
  - Death [Fatal]
  - Pulmonary embolism [Unknown]
  - Stevens-Johnson syndrome [Unknown]
  - Irritability [Unknown]
  - Completed suicide [Fatal]
  - Chest pain [Unknown]
  - Dizziness [Unknown]
  - Depression [Unknown]
  - Agitation [Unknown]
  - Myocardial infarction [Unknown]
  - Headache [Unknown]
  - Nausea [Unknown]
  - Insomnia [Unknown]
  - Anxiety [Unknown]
